FAERS Safety Report 4974053-6 (Version None)
Quarter: 2006Q2

REPORT INFORMATION
  Report Type: 
  Country: None (occurrence: None)
  Receive Date: 20060417
  Receipt Date: 20040825
  Transmission Date: 20061013
  Serious: Yes (Death)
  Sender: FDA-Public Use
  Company Number: US-GLAXOSMITHKLINE-A0524705A

PATIENT
  Age: 47 Year
  Sex: Male
  Weight: 81.8 kg

DRUGS (1)
  1. PAXIL CR [Suspect]
     Route: 048
     Dates: start: 20030501

REACTIONS (8)
  - AGITATION [None]
  - ANXIETY [None]
  - COMPLETED SUICIDE [None]
  - CONFUSIONAL STATE [None]
  - DISABILITY [None]
  - DISTURBANCE IN ATTENTION [None]
  - HAEMORRHAGE [None]
  - SUICIDAL IDEATION [None]
